FAERS Safety Report 23319268 (Version 2)
Quarter: 2023Q4

REPORT INFORMATION
  Report Type: Spontaneous
  Country: CA (occurrence: CA)
  Receive Date: 20231220
  Receipt Date: 20231230
  Transmission Date: 20240110
  Serious: Yes (Other)
  Sender: FDA-Public Use
  Company Number: CA-CELLTRION INC.-2023CA024318

PATIENT

DRUGS (4)
  1. INFLECTRA [Suspect]
     Active Substance: INFLIXIMAB-DYYB
     Indication: Crohn^s disease
     Dosage: 1200 MG, INDUCTION (Q 0, 2, 6 WEEKS) AND THEN EVERY 4 WEEKS
     Route: 042
     Dates: start: 20220912
  2. INFLECTRA [Suspect]
     Active Substance: INFLIXIMAB-DYYB
     Dosage: 1200 MG, INDUCTION (Q 0, 2, 6 WEEKS) AND THEN EVERY 4 WEEKS
     Route: 042
     Dates: start: 20231108
  3. INFLECTRA [Suspect]
     Active Substance: INFLIXIMAB-DYYB
     Dosage: 1200 MG, INDUCTION (Q 0, 2, 6 WEEKS) AND THEN EVERY 4 WEEKS (1200MG, 6 WEEKS)
     Route: 042
     Dates: start: 20231220
  4. PENICILLIN G [Concomitant]
     Active Substance: PENICILLIN G
     Dosage: UNK

REACTIONS (1)
  - Fistulotomy [Unknown]

NARRATIVE: CASE EVENT DATE: 20231204
